FAERS Safety Report 8473343-2 (Version None)
Quarter: 2012Q2

REPORT INFORMATION
  Report Type: 
  Country: None (occurrence: None)
  Receive Date: 20120628
  Receipt Date: 20120619
  Transmission Date: 20120825
  Serious: No
  Sender: FDA-Public Use
  Company Number: US-BIOGENIDEC-2012BI019161

PATIENT
  Age: 59 Year
  Sex: Female
  Weight: 72 kg

DRUGS (13)
  1. GABAPENTIN [Concomitant]
  2. TYSABRI [Suspect]
     Indication: MULTIPLE SCLEROSIS
     Route: 042
     Dates: start: 20101025, end: 20120516
  3. TYLENOL W/ CODEINE NO. 3 [Concomitant]
     Route: 048
  4. VITAMIN D [Concomitant]
  5. TYSABRI [Suspect]
     Route: 042
     Dates: start: 20120613
  6. CLONAZEPAM [Concomitant]
     Route: 048
  7. AVONEX [Concomitant]
     Indication: MULTIPLE SCLEROSIS
     Route: 030
  8. CERTAVITE [Concomitant]
     Route: 048
  9. SIMVASTATIN [Concomitant]
     Route: 048
  10. OMEPRAZOLE [Concomitant]
     Route: 048
  11. AVONEX [Concomitant]
     Route: 030
  12. VENLAFAXINE [Concomitant]
     Route: 048
  13. COLACE [Concomitant]

REACTIONS (1)
  - DIVERTICULITIS [None]
